FAERS Safety Report 21707659 (Version 3)
Quarter: 2023Q1

REPORT INFORMATION
  Report Type: Spontaneous
  Country: EG (occurrence: EG)
  Receive Date: 20221209
  Receipt Date: 20230203
  Transmission Date: 20230417
  Serious: Yes (Other)
  Sender: FDA-Public Use
  Company Number: EG-ELI_LILLY_AND_COMPANY-EG202211014613

PATIENT
  Age: 45 Year
  Sex: Female

DRUGS (5)
  1. CYRAMZA [Suspect]
     Active Substance: RAMUCIRUMAB
     Indication: Metastatic gastric cancer
     Dosage: 600 MG, OTHER (DAY 1 AND DAY 15)
     Route: 042
     Dates: start: 20221117
  2. TAXOL [Suspect]
     Active Substance: PACLITAXEL
     Indication: Metastatic gastric cancer
     Dosage: 140 MG, OTHER (DAY 1, 8 AND 15)
     Dates: start: 20221117
  3. SOLPADEINE [CODEINE PHOSPHATE;PARACETAMOL] [Concomitant]
     Indication: Product used for unknown indication
  4. PANADOL [Concomitant]
     Active Substance: ACETAMINOPHEN
     Indication: Product used for unknown indication
  5. FILGRASTIM [Concomitant]
     Active Substance: FILGRASTIM
     Indication: Neutropenia

REACTIONS (2)
  - Type IV hypersensitivity reaction [Recovering/Resolving]
  - Neutropenia [Unknown]

NARRATIVE: CASE EVENT DATE: 20221120
